FAERS Safety Report 4710918-8 (Version None)
Quarter: 2005Q3

REPORT INFORMATION
  Report Type: 
  Country: None (occurrence: None)
  Receive Date: 20050708
  Receipt Date: 20050624
  Transmission Date: 20060218
  Serious: Yes (Death, Life-Threatening, Hospitalization)
  Sender: FDA-Public Use
  Company Number: CLOF-10025

PATIENT
  Age: 77 Year
  Sex: Female

DRUGS (14)
  1. CLOFARABINE [Suspect]
     Indication: ACUTE MYELOID LEUKAEMIA
     Dates: start: 20050608, end: 20050612
  2. TRAMADOL HCL [Concomitant]
  3. PROPRANOLOL [Concomitant]
  4. CLOPIDOGREL BISULFATE [Concomitant]
  5. LABEPRAZOLE [Concomitant]
  6. COTRIM [Concomitant]
  7. NICOTINELL [Concomitant]
  8. ACYCLOVIR [Concomitant]
  9. ONDANSETRON [Concomitant]
  10. CORSODYL [Concomitant]
  11. ACETAMINOPHEN [Concomitant]
  12. MAXOLON [Concomitant]
  13. SALBUTAMOL [Concomitant]
  14. DIFFLAM [Concomitant]

REACTIONS (2)
  - HAEMODIALYSIS [None]
  - RENAL FAILURE ACUTE [None]
